FAERS Safety Report 6998624-0 (Version None)
Quarter: 2010Q3

REPORT INFORMATION
  Report Type: 
  Country: None (occurrence: None)
  Receive Date: 20100920
  Receipt Date: 20091113
  Transmission Date: 20110219
  Serious: No
  Sender: FDA-Public Use
  Company Number: US-ASTRAZENECA-2009SE26831

PATIENT
  Age: 68 Year
  Sex: Male
  Weight: 127 kg

DRUGS (9)
  1. SEROQUEL [Suspect]
     Indication: ANGER
     Route: 048
     Dates: start: 20090624, end: 20090627
  2. SEROQUEL [Suspect]
     Indication: AGITATION
     Route: 048
     Dates: start: 20090624, end: 20090627
  3. SEROQUEL [Suspect]
     Route: 048
     Dates: start: 20091110, end: 20091113
  4. SEROQUEL [Suspect]
     Route: 048
     Dates: start: 20091110, end: 20091113
  5. TYLENOL [Concomitant]
     Indication: ARTHRITIS
  6. LEXAPRO [Concomitant]
  7. LIPITOR [Concomitant]
     Indication: BLOOD CHOLESTEROL INCREASED
  8. GLUCOSAMINE [Concomitant]
     Indication: ARTHRITIS
  9. M.V.I. [Concomitant]

REACTIONS (4)
  - AGGRESSION [None]
  - ANGER [None]
  - DRUG EFFECT DECREASED [None]
  - IRRITABILITY [None]
